FAERS Safety Report 23043749 (Version 1)
Quarter: 2023Q4

REPORT INFORMATION
  Report Type: Spontaneous
  Country: US (occurrence: US)
  Receive Date: 20231009
  Receipt Date: 20231009
  Transmission Date: 20240110
  Serious: No
  Sender: FDA-Public Use
  Company Number: US-AMGEN-USASP2023176885

PATIENT
  Sex: Male

DRUGS (1)
  1. REPATHA [Suspect]
     Active Substance: EVOLOCUMAB
     Indication: Blood cholesterol increased
     Dosage: UNK
     Route: 065

REACTIONS (10)
  - Nipple pain [Unknown]
  - Nipple disorder [Unknown]
  - Rash [Unknown]
  - Erythema [Unknown]
  - Dry skin [Unknown]
  - Ocular hyperaemia [Unknown]
  - Headache [Unknown]
  - Pruritus [Recovered/Resolved]
  - Blood prolactin abnormal [Unknown]
  - Blood glucose increased [Unknown]
